FAERS Safety Report 19859705 (Version 1)
Quarter: 2021Q3

REPORT INFORMATION
  Report Type: Spontaneous
  Country: US (occurrence: US)
  Receive Date: 20210920
  Receipt Date: 20210920
  Transmission Date: 20211014
  Serious: Yes (Death)
  Sender: FDA-Public Use
  Company Number: None

PATIENT
  Age: 62 Year
  Sex: Male
  Weight: 108 kg

DRUGS (1)
  1. IVERMECTIN?VETERINARIAN GRADE [Suspect]
     Active Substance: IVERMECTIN

REACTIONS (6)
  - COVID-19 [None]
  - Pulse absent [None]
  - Respiratory distress [None]
  - Ejection fraction decreased [None]
  - Heart rate increased [None]
  - International normalised ratio increased [None]

NARRATIVE: CASE EVENT DATE: 20210912
